FAERS Safety Report 15927818 (Version 2)
Quarter: 2019Q1

REPORT INFORMATION
  Report Type: Spontaneous
  Country: DE (occurrence: DE)
  Receive Date: 20190206
  Receipt Date: 20190222
  Transmission Date: 20190417
  Serious: Yes (Other)
  Sender: FDA-Public Use
  Company Number: DE-TEVA-2019-DE-1008803

PATIENT
  Sex: Male
  Weight: 29.5 kg

DRUGS (2)
  1. MEDIKINET [Suspect]
     Active Substance: METHYLPHENIDATE
     Indication: ATTENTION DEFICIT/HYPERACTIVITY DISORDER
     Dosage: 10 MILLIGRAM DAILY;
     Route: 048
  2. KINECTEEN 36 MG [Suspect]
     Active Substance: METHYLPHENIDATE
     Indication: ATTENTION DEFICIT/HYPERACTIVITY DISORDER
     Dosage: 36 MILLIGRAM DAILY;
     Route: 048

REACTIONS (6)
  - Unresponsive to stimuli [Unknown]
  - Disturbance in attention [Recovered/Resolved]
  - Sedation [Unknown]
  - Affect lability [Unknown]
  - Drug effect decreased [Recovered/Resolved]
  - Crying [Unknown]
